FAERS Safety Report 23432278 (Version 1)
Quarter: 2024Q1

REPORT INFORMATION
  Report Type: Report from Study
  Country: US (occurrence: US)
  Receive Date: 20240123
  Receipt Date: 20240123
  Transmission Date: 20240410
  Serious: Yes (Other)
  Sender: FDA-Public Use
  Company Number: US-GILEAD-2024-0659266

PATIENT
  Sex: Female

DRUGS (2)
  1. AZTREONAM LYSINE [Suspect]
     Active Substance: AZTREONAM LYSINE
     Indication: Cystic fibrosis
     Dosage: 1 ML (75 MG) VIA ALTERA NEBULIZER IN THE MORNING, AFTERNOON AND AT BEDTIME FOR 28 DAYS ON, THEN STOP
     Route: 055
     Dates: start: 202312
  2. AZTREONAM LYSINE [Suspect]
     Active Substance: AZTREONAM LYSINE
     Indication: Pseudomonas infection

REACTIONS (2)
  - Nephrolithiasis [Unknown]
  - Infection [Not Recovered/Not Resolved]
